FAERS Safety Report 19673721 (Version 1)
Quarter: 2021Q3

REPORT INFORMATION
  Report Type: Spontaneous
  Country: US (occurrence: US)
  Receive Date: 20210808
  Receipt Date: 20210808
  Transmission Date: 20211014
  Serious: No
  Sender: FDA-Public Use
  Company Number: None

PATIENT
  Age: 51 Year
  Sex: Female

DRUGS (1)
  1. BOTOX [Suspect]
     Active Substance: ONABOTULINUMTOXINA
     Indication: MIGRAINE
     Dosage: ?          OTHER FREQUENCY:QUARTERLY;OTHER ROUTE:INJECTIONS?
     Dates: end: 20210304

REACTIONS (6)
  - Crying [None]
  - General physical health deterioration [None]
  - Pain [None]
  - Injection site swelling [None]
  - Therapeutic product effect incomplete [None]
  - Fatigue [None]

NARRATIVE: CASE EVENT DATE: 20210304
